FAERS Safety Report 8616600-9 (Version None)
Quarter: 2012Q3

REPORT INFORMATION
  Report Type: 
  Country: None (occurrence: None)
  Receive Date: 20120823
  Receipt Date: 20120817
  Transmission Date: 20120928
  Serious: Yes (Other)
  Sender: FDA-Public Use
  Company Number: PHHY2012GB071546

PATIENT
  Sex: Female

DRUGS (2)
  1. DOXYCYCLINE HCL [Suspect]
     Indication: LOWER RESPIRATORY TRACT INFECTION
     Dosage: 50 MG, UNK
  2. DOXYCYCLINE HCL [Suspect]
     Dosage: 100 MG, UNK

REACTIONS (1)
  - CONVULSION [None]
